FAERS Safety Report 8427091-5 (Version None)
Quarter: 2012Q2

REPORT INFORMATION
  Report Type: 
  Country: None (occurrence: None)
  Receive Date: 20120611
  Receipt Date: 20120531
  Transmission Date: 20120825
  Serious: Yes (Other)
  Sender: FDA-Public Use
  Company Number: AU-JNJFOC-20120603340

PATIENT
  Sex: Female

DRUGS (5)
  1. WARFARIN [Concomitant]
     Indication: PRODUCT USED FOR UNKNOWN INDICATION
  2. TRAMADOL HCL [Suspect]
     Indication: POSTOPERATIVE CARE
     Route: 065
     Dates: start: 20120330
  3. OXYCODONE HCL [Suspect]
     Indication: PRODUCT USED FOR UNKNOWN INDICATION
  4. VENLAFAXINE HCL [Concomitant]
     Indication: PRODUCT USED FOR UNKNOWN INDICATION
  5. ACETAMINOPHEN [Concomitant]
     Indication: PRODUCT USED FOR UNKNOWN INDICATION

REACTIONS (5)
  - HYPERSOMNIA [None]
  - RESPIRATORY RATE DECREASED [None]
  - OXYGEN SATURATION DECREASED [None]
  - PERIPHERAL CIRCULATORY FAILURE [None]
  - MIOSIS [None]
